FAERS Safety Report 14750599 (Version 3)
Quarter: 2018Q3

REPORT INFORMATION
  Report Type: Spontaneous
  Country: US (occurrence: US)
  Receive Date: 20180412
  Receipt Date: 20180705
  Transmission Date: 20181010
  Serious: Yes (Hospitalization, Other)
  Sender: FDA-Public Use
  Company Number: US-PFIZER INC-2018148250

PATIENT
  Age: 27 Year
  Sex: Male
  Weight: 100 kg

DRUGS (1)
  1. DAPTOMYCIN. [Suspect]
     Active Substance: DAPTOMYCIN
     Indication: OSTEOMYELITIS
     Dosage: 600MG, ONCE DAILY ADMINISTERED OVER 30 MINUTES
     Route: 042
     Dates: start: 20180330, end: 201804

REACTIONS (3)
  - Rhabdomyolysis [Unknown]
  - Abdominal pain upper [Unknown]
  - Product use in unapproved indication [Unknown]

NARRATIVE: CASE EVENT DATE: 20180330
